FAERS Safety Report 17191944 (Version 2)
Quarter: 2019Q4

REPORT INFORMATION
  Report Type: Spontaneous
  Country: US (occurrence: US)
  Receive Date: 20191223
  Receipt Date: 20191227
  Transmission Date: 20200122
  Serious: No
  Sender: FDA-Public Use
  Company Number: US-NANJING KING-FRIEND BIOCHEMICAL PHARMACEUTICAL CO., LTD-2019NKF00032

PATIENT
  Age: 62 Year
  Sex: Male
  Weight: 105 kg

DRUGS (18)
  1. HEPARIN [Suspect]
     Active Substance: HEPARIN SODIUM
     Dosage: 3000 U, ONCE AT 12:45
     Route: 042
     Dates: start: 20191120, end: 20191120
  2. AMIODARONE [Concomitant]
     Active Substance: AMIODARONE
  3. SPIRONOLACTONE. [Concomitant]
     Active Substance: SPIRONOLACTONE
  4. HEPARIN [Suspect]
     Active Substance: HEPARIN SODIUM
     Dosage: 5000 U, ONCE AT 12:10
     Route: 042
     Dates: start: 20191120, end: 20191120
  5. NEPHROCAPS [Concomitant]
     Active Substance: ASCORBIC ACID\BIOTIN\CYANOCOBALAMIN\FOLIC ACID\NIACIN\PANTOTHENIC ACID\PYRIDOXINE\RIBOFLAVIN\THIAMINE
  6. LEXAPRO [Concomitant]
     Active Substance: ESCITALOPRAM OXALATE
  7. FUROSEMIDE. [Concomitant]
     Active Substance: FUROSEMIDE
  8. HEPARIN SODIUM. [Suspect]
     Active Substance: HEPARIN SODIUM
     Indication: PERCUTANEOUS CORONARY INTERVENTION
     Dosage: 8000 U AT 11:40
     Route: 042
     Dates: start: 20191120, end: 20191120
  9. ATORVASTATIN [Concomitant]
     Active Substance: ATORVASTATIN
  10. FOLIC ACID. [Concomitant]
     Active Substance: FOLIC ACID
  11. LOSARTAN. [Concomitant]
     Active Substance: LOSARTAN
  12. HEPARIN SODIUM. [Suspect]
     Active Substance: HEPARIN SODIUM
     Indication: CORONARY ARTERY BYPASS
  13. HEPARIN [Suspect]
     Active Substance: HEPARIN SODIUM
     Dosage: 2000 U, ONCE AT 11:50
     Route: 042
     Dates: start: 20191120, end: 20191120
  14. PANTOPRAZOLE [Concomitant]
     Active Substance: PANTOPRAZOLE
  15. SENNA [Concomitant]
     Active Substance: SENNA LEAF\SENNOSIDES\SENNOSIDES A AND B
  16. METHYLPREDNISOLONE. [Concomitant]
     Active Substance: METHYLPREDNISOLONE
  17. TAMSULOSIN [Concomitant]
     Active Substance: TAMSULOSIN
  18. THIAMINE. [Concomitant]
     Active Substance: THIAMINE

REACTIONS (1)
  - Therapeutic product effect incomplete [Recovered/Resolved]

NARRATIVE: CASE EVENT DATE: 20191120
